FAERS Safety Report 14329471 (Version 4)
Quarter: 2018Q3

REPORT INFORMATION
  Report Type: Report from Study
  Country: FR (occurrence: FR)
  Receive Date: 20171227
  Receipt Date: 20180809
  Transmission Date: 20181010
  Serious: Yes (Hospitalization, Congenital Anomaly, Other)
  Sender: FDA-Public Use
  Company Number: FR-ASTELLAS-2017US055480

PATIENT
  Sex: Male
  Weight: 3 kg

DRUGS (11)
  1. PENICILLIN G                       /00000901/ [Suspect]
     Active Substance: PENICILLIN G
     Indication: FOETAL EXPOSURE DURING PREGNANCY
     Dosage: UNK UNK, UNKNOWN FREQ.
     Route: 064
  2. TACROLIMUS. [Suspect]
     Active Substance: TACROLIMUS
     Indication: FOETAL EXPOSURE DURING PREGNANCY
     Route: 064
  3. RETROVIR [Suspect]
     Active Substance: ZIDOVUDINE
     Indication: FOETAL EXPOSURE DURING PREGNANCY
     Dosage: UNK, UNKNOWN FREQ.
     Route: 064
  4. SUSTIVA [Suspect]
     Active Substance: EFAVIRENZ
     Indication: FOETAL EXPOSURE DURING PREGNANCY
     Route: 064
  5. ZIAGEN [Suspect]
     Active Substance: ABACAVIR SULFATE
     Indication: FOETAL EXPOSURE DURING PREGNANCY
     Route: 064
  6. SOLUPRED                           /00016201/ [Suspect]
     Active Substance: PREDNISOLONE
     Indication: FOETAL EXPOSURE DURING PREGNANCY
     Route: 064
  7. SUSTIVA [Suspect]
     Active Substance: EFAVIRENZ
     Indication: HIV INFECTION
  8. UN ALFA [Suspect]
     Active Substance: ALFACALCIDOL
     Indication: FOETAL EXPOSURE DURING PREGNANCY
     Route: 064
  9. RETROVIR [Suspect]
     Active Substance: ZIDOVUDINE
     Indication: PROPHYLAXIS AGAINST HIV INFECTION
     Dosage: 4 MG/KG, EVERY 12 HOURS
     Route: 064
     Dates: start: 20150608, end: 20150608
  10. ZIAGEN [Suspect]
     Active Substance: ABACAVIR SULFATE
     Route: 064
  11. EPIVIR [Suspect]
     Active Substance: LAMIVUDINE
     Indication: FOETAL EXPOSURE DURING PREGNANCY
     Route: 064

REACTIONS (5)
  - Foetal growth restriction [Recovered/Resolved]
  - Muscle atrophy [Unknown]
  - Small for dates baby [Recovered/Resolved]
  - Low birth weight baby [Recovered/Resolved]
  - Foetal exposure during pregnancy [Recovered/Resolved]

NARRATIVE: CASE EVENT DATE: 20150224
